FAERS Safety Report 10384522 (Version 1)
Quarter: 2014Q1

REPORT INFORMATION
  Report Type: Spontaneous
  Country: US (occurrence: None)
  Receive Date: 20140306
  Receipt Date: 20140306
  Transmission Date: 20141002
  Serious: Yes (Other)
  Sender: FDA-Public Use
  Company Number: 163-21880-13102256

PATIENT
  Age: 65 Year
  Sex: Female

DRUGS (16)
  1. REVLIMID (LENALIDOMIDE) (15 MILLIGRAM, CAPSULES) [Suspect]
     Indication: PLASMA CELL MYELOMA
     Route: 048
     Dates: start: 20100608
  2. LEVOTHYROXINE [Concomitant]
  3. PNEUMONOCOCCAL VACCINE [Concomitant]
  4. FLU VACCINE (INFLUENZA VACCINE) [Concomitant]
  5. OXYCODONE/ ACETAMINOPHEN (OXYCOCET) [Concomitant]
  6. GABAPENTIN [Concomitant]
  7. OMEPRAZOLE [Concomitant]
  8. DEXAMETHASONE [Concomitant]
  9. TERBINAFINE [Concomitant]
  10. CALCIUM CARBONATE [Concomitant]
  11. ASPIRIN (ACETYLSALICYLIC ACID) [Concomitant]
  12. NEPHROCAPS [Concomitant]
  13. LISINOPRIL [Concomitant]
  14. RED BLOOD CELLS [Concomitant]
  15. ARANESP (DARBEPOETIN ALFA) [Concomitant]
  16. HEPARIN [Concomitant]

REACTIONS (2)
  - Renal failure chronic [None]
  - Diverticulitis [None]
